FAERS Safety Report 10680839 (Version 1)
Quarter: 2014Q4

REPORT INFORMATION
  Report Type: Spontaneous
  Country: HR (occurrence: HR)
  Receive Date: 20141229
  Receipt Date: 20141229
  Transmission Date: 20150529
  Serious: Yes (Hospitalization)
  Sender: FDA-Public Use
  Company Number: HR-TEVA-531045ISR

PATIENT
  Sex: Female

DRUGS (1)
  1. RISBON [Suspect]
     Active Substance: RISEDRONIC ACID

REACTIONS (1)
  - Arrhythmia [Unknown]
